FAERS Safety Report 17071891 (Version 1)
Quarter: 2019Q4

REPORT INFORMATION
  Report Type: Other
  Country: DE (occurrence: DE)
  Receive Date: 20191125
  Receipt Date: 20191125
  Transmission Date: 20200122
  Serious: Yes (Hospitalization, Other)
  Sender: FDA-Public Use
  Company Number: DE-CELLTRION INC.-2019DE026618

PATIENT

DRUGS (48)
  1. RITUXIMAB (UNKNOWN) [Suspect]
     Active Substance: RITUXIMAB
     Dosage: 656.6 MG, UNK
     Route: 041
     Dates: start: 20181213, end: 20181213
  2. RITUXIMAB (UNKNOWN) [Suspect]
     Active Substance: RITUXIMAB
     Dosage: 656.25 MG, UNK
     Route: 041
     Dates: start: 20190124, end: 20190124
  3. VINCRISTINE [Suspect]
     Active Substance: VINCRISTINE
     Dosage: 1 MG, UNK
     Route: 041
     Dates: start: 20190215, end: 20190215
  4. VINCRISTINE [Suspect]
     Active Substance: VINCRISTINE
     Dosage: 1 MG, UNK
     Route: 065
     Dates: start: 20190329, end: 20190329
  5. CYCLOPHOSPHAMIDE. [Suspect]
     Active Substance: CYCLOPHOSPHAMIDE
     Dosage: 1312.5 MG, UNK
     Route: 041
     Dates: start: 20190215, end: 20190215
  6. AMLODIPINE [Concomitant]
     Active Substance: AMLODIPINE BESYLATE
     Indication: HYPERTENSION
     Dosage: UNK
     Route: 048
     Dates: start: 2000
  7. RITUXIMAB (UNKNOWN) [Suspect]
     Active Substance: RITUXIMAB
     Indication: DIFFUSE LARGE B-CELL LYMPHOMA
     Dosage: 656.6 MG, UNK
     Route: 041
     Dates: start: 20181213, end: 20181213
  8. RITUXIMAB (UNKNOWN) [Suspect]
     Active Substance: RITUXIMAB
     Dosage: 656.25 MG, UNK
     Route: 041
     Dates: start: 20190214, end: 20190214
  9. PREDNISONE. [Suspect]
     Active Substance: PREDNISONE
     Indication: DIFFUSE LARGE B-CELL LYMPHOMA
     Dosage: 700 MG, UNK
     Route: 048
     Dates: start: 20181207, end: 20181213
  10. PREDNISONE. [Suspect]
     Active Substance: PREDNISONE
     Dosage: 500 MG, UNK
     Route: 048
     Dates: start: 20190104, end: 20190108
  11. CYCLOPHOSPHAMIDE. [Suspect]
     Active Substance: CYCLOPHOSPHAMIDE
     Dosage: 1312.5 MG, UNK
     Route: 041
     Dates: start: 20190104, end: 20190104
  12. ALLOPURINOL. [Concomitant]
     Active Substance: ALLOPURINOL
     Indication: PROPHYLAXIS
     Dosage: UNK
     Route: 048
     Dates: start: 201812, end: 20190615
  13. RITUXIMAB (UNKNOWN) [Suspect]
     Active Substance: RITUXIMAB
     Dosage: 656.25 MG, UNK
     Route: 041
     Dates: start: 20190307, end: 20190307
  14. VINCRISTINE [Suspect]
     Active Substance: VINCRISTINE
     Dosage: 1 MG, UNK
     Route: 041
     Dates: start: 20190104, end: 20190104
  15. CYCLOPHOSPHAMIDE. [Suspect]
     Active Substance: CYCLOPHOSPHAMIDE
     Dosage: 1312.5 MG, UNK
     Route: 041
     Dates: start: 20190125, end: 20190125
  16. CYCLOPHOSPHAMIDE. [Suspect]
     Active Substance: CYCLOPHOSPHAMIDE
     Dosage: 1312.5 MG, UNK
     Route: 041
     Dates: start: 20190308, end: 20190308
  17. PREDNISOLON [PREDNISOLONE] [Concomitant]
     Active Substance: PREDNISOLONE
     Indication: DIFFUSE LARGE B-CELL LYMPHOMA
     Dosage: UNK
     Route: 048
     Dates: start: 20181214, end: 20181218
  18. DEKRISTOL [Concomitant]
     Active Substance: CHOLECALCIFEROL
     Indication: GENERAL PHYSICAL CONDITION ABNORMAL
     Dosage: UNK
     Route: 048
     Dates: start: 201812
  19. RITUXIMAB (UNKNOWN) [Suspect]
     Active Substance: RITUXIMAB
     Dosage: 656.25 MG, UNK
     Route: 065
     Dates: start: 20190328
  20. RITUXIMAB (UNKNOWN) [Suspect]
     Active Substance: RITUXIMAB
     Dosage: 656.25 MG, UNK
     Route: 065
     Dates: start: 20190418
  21. DOXORUBICIN [Suspect]
     Active Substance: DOXORUBICIN
     Dosage: 65.63 MG, UNK
     Route: 065
     Dates: start: 20190329, end: 20190329
  22. RITUXIMAB (UNKNOWN) [Suspect]
     Active Substance: RITUXIMAB
     Dosage: 656.25 MG, UNK
     Route: 041
     Dates: start: 20190103, end: 20190103
  23. RITUXIMAB (UNKNOWN) [Suspect]
     Active Substance: RITUXIMAB
     Dosage: 656.25 MG, UNK
     Route: 041
     Dates: start: 20190214, end: 20190214
  24. RITUXIMAB (UNKNOWN) [Suspect]
     Active Substance: RITUXIMAB
     Dosage: 656.25 MG, UNK
     Route: 065
     Dates: start: 20190328
  25. VINCRISTINE [Suspect]
     Active Substance: VINCRISTINE
     Indication: DIFFUSE LARGE B-CELL LYMPHOMA
     Dosage: 1 MG, UNK
     Route: 041
     Dates: start: 20181207, end: 20181207
  26. PREDNISONE. [Suspect]
     Active Substance: PREDNISONE
     Dosage: 500 MG, UNK
     Route: 048
     Dates: start: 20190215, end: 20190219
  27. PREDNISONE. [Suspect]
     Active Substance: PREDNISONE
     Dosage: 500 MG, UNK
     Route: 048
     Dates: start: 20190308, end: 20190312
  28. PREDNISONE. [Suspect]
     Active Substance: PREDNISONE
     Dosage: 500 MG, UNK
     Route: 048
     Dates: start: 20190329, end: 20190402
  29. DOXORUBICIN [Suspect]
     Active Substance: DOXORUBICIN
     Dosage: 87.5 MG, UNK
     Route: 041
     Dates: start: 20190308, end: 20190308
  30. PANTOZOL [Concomitant]
     Active Substance: PANTOPRAZOLE SODIUM
     Indication: PROPHYLAXIS
     Dosage: UNK
     Route: 048
     Dates: start: 201812, end: 20190615
  31. ACICLOVIR [Concomitant]
     Active Substance: ACYCLOVIR
     Indication: PROPHYLAXIS
     Dosage: UNK
     Route: 048
     Dates: start: 201812, end: 20190615
  32. RAMIPRIL. [Concomitant]
     Active Substance: RAMIPRIL
     Indication: HYPERTENSION
     Dosage: UNK
     Route: 048
     Dates: start: 2000
  33. RITUXIMAB (UNKNOWN) [Suspect]
     Active Substance: RITUXIMAB
     Dosage: 656.25 MG, UNK
     Route: 041
     Dates: start: 20190307, end: 20190307
  34. VINCRISTINE [Suspect]
     Active Substance: VINCRISTINE
     Dosage: 1 MG, UNK
     Route: 041
     Dates: start: 20190308, end: 20190308
  35. DOXORUBICIN [Suspect]
     Active Substance: DOXORUBICIN
     Dosage: 87.5 MG, UNK
     Route: 041
     Dates: start: 20190104, end: 20190104
  36. DOXORUBICIN [Suspect]
     Active Substance: DOXORUBICIN
     Dosage: 87.5 MG, UNK
     Route: 041
     Dates: start: 20190125, end: 20190125
  37. NEULASTA [Concomitant]
     Active Substance: PEGFILGRASTIM
     Indication: PROPHYLAXIS
     Dosage: UNK
     Route: 058
     Dates: start: 20190103, end: 20190402
  38. RITUXIMAB (UNKNOWN) [Suspect]
     Active Substance: RITUXIMAB
     Dosage: 656.25 MG, UNK
     Route: 041
     Dates: start: 20190103, end: 20190103
  39. RITUXIMAB (UNKNOWN) [Suspect]
     Active Substance: RITUXIMAB
     Dosage: 656.25 MG, UNK
     Route: 065
     Dates: start: 20190516
  40. PREDNISONE. [Suspect]
     Active Substance: PREDNISONE
     Dosage: 500 MG, UNK
     Route: 048
     Dates: start: 20190125, end: 20190129
  41. DOXORUBICIN [Suspect]
     Active Substance: DOXORUBICIN
     Dosage: 87.5 MG, UNK
     Route: 041
     Dates: start: 20190215, end: 20190215
  42. CYCLOPHOSPHAMIDE. [Suspect]
     Active Substance: CYCLOPHOSPHAMIDE
     Indication: DIFFUSE LARGE B-CELL LYMPHOMA
     Dosage: 1312.5 MG, UNK
     Route: 041
     Dates: start: 20181214, end: 20181214
  43. RITUXIMAB (UNKNOWN) [Suspect]
     Active Substance: RITUXIMAB
     Dosage: 656.25 MG, UNK
     Route: 041
     Dates: start: 20190124, end: 20190124
  44. RITUXIMAB (UNKNOWN) [Suspect]
     Active Substance: RITUXIMAB
     Dosage: 656.25 MG, UNK
     Route: 065
     Dates: start: 20190418
  45. VINCRISTINE [Suspect]
     Active Substance: VINCRISTINE
     Dosage: 1 MG, UNK
     Route: 041
     Dates: start: 20190125, end: 20190125
  46. DOXORUBICIN [Suspect]
     Active Substance: DOXORUBICIN
     Indication: DIFFUSE LARGE B-CELL LYMPHOMA
     Dosage: 87.5 MG, UNK
     Route: 041
     Dates: start: 20181214, end: 20181214
  47. CYCLOPHOSPHAMIDE. [Suspect]
     Active Substance: CYCLOPHOSPHAMIDE
     Dosage: 984.38 MG, UNK
     Route: 065
     Dates: start: 20190329, end: 20190329
  48. COTRIM [Concomitant]
     Active Substance: SULFAMETHOXAZOLE\TRIMETHOPRIM
     Indication: PROPHYLAXIS
     Dosage: UNK
     Route: 048
     Dates: start: 201812, end: 20190615

REACTIONS (13)
  - Peripheral swelling [Not Recovered/Not Resolved]
  - Erysipelas [Recovered/Resolved]
  - Leukopenia [Recovered/Resolved]
  - Nocturia [Not Recovered/Not Resolved]
  - Paraesthesia [Not Recovered/Not Resolved]
  - Hyperhidrosis [Unknown]
  - Pyrexia [Unknown]
  - Pain in extremity [Not Recovered/Not Resolved]
  - Asthenia [Unknown]
  - Fatigue [Not Recovered/Not Resolved]
  - Underdose [Unknown]
  - Gastric cancer [Recovered/Resolved]
  - Alopecia [Not Recovered/Not Resolved]

NARRATIVE: CASE EVENT DATE: 20190118
